FAERS Safety Report 19606709 (Version 1)
Quarter: 2021Q3

REPORT INFORMATION
  Report Type: Spontaneous
  Country: US (occurrence: US)
  Receive Date: 20210725
  Receipt Date: 20210725
  Transmission Date: 20211014
  Serious: No
  Sender: FDA-Public Use
  Company Number: US-BAUSCH-BL-2021-021297

PATIENT
  Sex: Female

DRUGS (1)
  1. LOTEMAX [Suspect]
     Active Substance: LOTEPREDNOL ETABONATE
     Indication: CORNEAL SCAR
     Dosage: APPLYING THE OINTMENT TO THE SKIN OUTSIDE OF HER EYES
     Route: 065

REACTIONS (5)
  - Erythema [Unknown]
  - Product prescribing error [Unknown]
  - Periorbital swelling [Unknown]
  - Skin lesion [Unknown]
  - Incorrect route of product administration [Unknown]
